FAERS Safety Report 13267781 (Version 6)
Quarter: 2017Q3

REPORT INFORMATION
  Report Type: Report from Study
  Country: JP (occurrence: JP)
  Receive Date: 20170224
  Receipt Date: 20170719
  Transmission Date: 20171127
  Serious: Yes (Hospitalization)
  Sender: FDA-Public Use
  Company Number: JP-EISAI MEDICAL RESEARCH-EC-2017-024655

PATIENT
  Age: 75 Year
  Sex: Female
  Weight: 44 kg

DRUGS (14)
  1. DONEPEZIL. [Suspect]
     Active Substance: DONEPEZIL
     Route: 048
     Dates: start: 20161125, end: 20170126
  2. MAGNESIUM OXIDE. [Concomitant]
     Active Substance: MAGNESIUM OXIDE
  3. LEVOTHYROXINE SODIUM HYDRATE [Concomitant]
     Active Substance: LEVOTHYROXINE SODIUM
  4. DONEPEZIL. [Suspect]
     Active Substance: DONEPEZIL
     Dosage: COMMERCIAL DONEPEZIL HCL
     Route: 048
     Dates: start: 20170222, end: 20170223
  5. SODIUM RISEDRONATE HYDRATE [Concomitant]
     Active Substance: RISEDRONATE SODIUM HEMI-PENTAHYDRATE
  6. CLONAZEPAM. [Concomitant]
     Active Substance: CLONAZEPAM
  7. TSUMURA SAIKOKARYUKOTSUBOREITO [Concomitant]
  8. DONEPEZIL. [Suspect]
     Active Substance: DONEPEZIL
     Indication: DEMENTIA WITH LEWY BODIES
     Route: 048
     Dates: start: 20161111, end: 20161124
  9. ALFACALCIDOL [Concomitant]
     Active Substance: ALFACALCIDOL
  10. LOXOPROFEN SODIUM HYDRATE [Concomitant]
     Active Substance: LOXOPROFEN SODIUM DIHYDRATE
  11. CHLORDIAZEPOXIDE. [Concomitant]
     Active Substance: CHLORDIAZEPOXIDE
  12. DONEPEZIL. [Suspect]
     Active Substance: DONEPEZIL
     Route: 048
     Dates: start: 20170127, end: 20170220
  13. SERTRALINE [Concomitant]
     Active Substance: SERTRALINE HYDROCHLORIDE
  14. HOMOCHLORCYCLIZINE HYDROCHLORIDE [Concomitant]

REACTIONS (2)
  - Delirium [Recovered/Resolved]
  - Compression fracture [Recovering/Resolving]

NARRATIVE: CASE EVENT DATE: 20170127
